FAERS Safety Report 20441767 (Version 1)
Quarter: 2022Q1

REPORT INFORMATION
  Report Type: Spontaneous
  Country: PT (occurrence: PT)
  Receive Date: 20220208
  Receipt Date: 20220208
  Transmission Date: 20220423
  Serious: Yes (Hospitalization, Other)
  Sender: FDA-Public Use
  Company Number: None

PATIENT
  Age: 78 Year
  Sex: Female

DRUGS (4)
  1. LISINOPRIL [Suspect]
     Active Substance: LISINOPRIL
     Indication: Hypertension
     Route: 065
  2. LISINOPRIL AND HYDROCHLOROTHIAZIDE [Suspect]
     Active Substance: HYDROCHLOROTHIAZIDE\LISINOPRIL
     Indication: Hypertension
  3. HYDROCHLOROTHIAZIDE [Concomitant]
     Active Substance: HYDROCHLOROTHIAZIDE
     Indication: Hypertension
     Route: 065
  4. ACITRETIN [Concomitant]
     Active Substance: ACITRETIN
     Indication: Product used for unknown indication
     Route: 065

REACTIONS (11)
  - Hypotension [Unknown]
  - Skin necrosis [Unknown]
  - Multiple organ dysfunction syndrome [Unknown]
  - Retroperitoneal abscess [Unknown]
  - Hypothermia [Unknown]
  - Mucosal inflammation [Unknown]
  - Distributive shock [Unknown]
  - Condition aggravated [Recovering/Resolving]
  - Dry eye [Unknown]
  - Poor peripheral circulation [Unknown]
  - Erythrodermic psoriasis [Recovering/Resolving]
